FAERS Safety Report 23588702 (Version 2)
Quarter: 2024Q1

REPORT INFORMATION
  Report Type: Spontaneous
  Country: AU (occurrence: AU)
  Receive Date: 20240302
  Receipt Date: 20240329
  Transmission Date: 20240410
  Serious: Yes (Other)
  Sender: FDA-Public Use
  Company Number: AU-JNJFOC-20240265921

PATIENT
  Age: 26 Day
  Sex: Male
  Weight: 0.943 kg

DRUGS (12)
  1. BEDAQUILINE [Suspect]
     Active Substance: BEDAQUILINE
     Indication: Congenital tuberculosis
     Dosage: 20 MG PO MON, WED, FRI FROM MONTH 6 TO MONTH 9
     Route: 048
  2. BEDAQUILINE [Suspect]
     Active Substance: BEDAQUILINE
     Dosage: 30 MG  PO DAILY DURING WEEK 12 AND WEEK 13
     Route: 048
  3. BEDAQUILINE [Suspect]
     Active Substance: BEDAQUILINE
     Dosage: 10 MG PO MON, WED, FRI DURING WEEK 14, 15, 16 AND 5TH MONTH
     Route: 048
  4. CLOFAZIMINE [Suspect]
     Active Substance: CLOFAZIMINE
     Indication: Congenital tuberculosis
     Dosage: 5MG/KG PO DAILY FROM WEEK 10, 11, 12, 13, 14, 15 AND MONTHS 5 TO 10
     Route: 048
  5. DELAMANID [Suspect]
     Active Substance: DELAMANID
     Indication: Congenital tuberculosis
     Dosage: 12.5 MG PO DAILY FROM WEEK 5 TO 11
     Route: 048
  6. DELAMANID [Suspect]
     Active Substance: DELAMANID
     Dosage: 25MG PO DAILY FROM WEEK 12-16 AND 5TH MONTH
     Route: 048
  7. DELAMANID [Suspect]
     Active Substance: DELAMANID
     Dosage: 50MG PO IN 2 DIVIDED DOSES FROM MONTH 11 TO 13
     Route: 048
  8. LINEZOLID [Suspect]
     Active Substance: LINEZOLID
     Indication: Congenital tuberculosis
     Dosage: 20MG/ML
     Route: 048
  9. LINEZOLID [Suspect]
     Active Substance: LINEZOLID
     Dosage: 600MG/300ML
     Route: 042
  10. LINEZOLID [Suspect]
     Active Substance: LINEZOLID
     Dosage: 15MG/KG IV/PO IN 2 DIVIDED DOSES FROM WEEK 3 TO 11
  11. LINEZOLID [Suspect]
     Active Substance: LINEZOLID
     Dosage: 20MG/KG PO IN 2 DIVIDED DOSES FROM WEEK 12-16 AND MONTHS 5 AND 6
     Route: 048
  12. LINEZOLID [Suspect]
     Active Substance: LINEZOLID
     Dosage: 15MG/KG PO DAILY GIVEN IN 12 AND 13 MONTH OF TREATMENT
     Route: 048

REACTIONS (6)
  - Deafness neurosensory [Unknown]
  - Neutropenia [Recovered/Resolved]
  - Weight gain poor [Unknown]
  - Vomiting [Unknown]
  - Off label use [Unknown]
  - Product use issue [Unknown]
